FAERS Safety Report 10543006 (Version 1)
Quarter: 2014Q4

REPORT INFORMATION
  Report Type: Spontaneous
  Country: US (occurrence: None)
  Receive Date: 20141024
  Receipt Date: 20141024
  Transmission Date: 20150529
  Serious: Yes (Other)
  Sender: FDA-Public Use
  Company Number: None

PATIENT
  Age: 29 Year
  Sex: Female
  Weight: 136.08 kg

DRUGS (1)
  1. DEPAKOTE ER [Suspect]
     Active Substance: DIVALPROEX SODIUM
     Indication: BIPOLAR I DISORDER
     Dosage: 500 MG?4 AT HS?BY MOUTH
     Route: 048
     Dates: start: 20090406, end: 20090413

REACTIONS (3)
  - Mania [None]
  - Mood swings [None]
  - Product substitution issue [None]

NARRATIVE: CASE EVENT DATE: 20090413
